FAERS Safety Report 5940153-7 (Version None)
Quarter: 2008Q4

REPORT INFORMATION
  Report Type: 
  Country: None (occurrence: None)
  Receive Date: 20081104
  Receipt Date: 20081029
  Transmission Date: 20090506
  Serious: Yes (Hospitalization)
  Sender: FDA-Public Use
  Company Number: US-ELI_LILLY_AND_COMPANY-US200810006940

PATIENT
  Sex: Male

DRUGS (2)
  1. HUMALOG [Suspect]
     Indication: DIABETES MELLITUS
  2. GLIPIZIDE [Concomitant]
     Indication: DIABETES MELLITUS
     Dosage: 5 MG, 2/D

REACTIONS (6)
  - ERYTHEMA [None]
  - HOSPITALISATION [None]
  - INAPPROPRIATE DEVICE PROGRAMMING [None]
  - LOCALISED INFECTION [None]
  - OPEN WOUND [None]
  - STAPHYLOCOCCAL INFECTION [None]
